FAERS Safety Report 23350222 (Version 1)
Quarter: 2023Q4

REPORT INFORMATION
  Report Type: Spontaneous
  Country: KR (occurrence: KR)
  Receive Date: 20231229
  Receipt Date: 20231229
  Transmission Date: 20240109
  Serious: Yes (Hospitalization, Other)
  Sender: FDA-Public Use
  Company Number: KR-BAYER-2023A185372

PATIENT
  Age: 74 Year
  Sex: Male

DRUGS (2)
  1. NAPROXEN SODIUM [Suspect]
     Active Substance: NAPROXEN\NAPROXEN SODIUM
     Indication: Pain
     Dosage: 2 DF, QD (TAKEN FOR AT LEAST 3 YEARS)
  2. POLMACOXIB [Suspect]
     Active Substance: POLMACOXIB
     Indication: Pain
     Dosage: 1 DF (TAKEN FOR AT LEAST 3 YEARS)

REACTIONS (1)
  - Intestinal diaphragm disease [Recovering/Resolving]
